FAERS Safety Report 5189782-1 (Version None)
Quarter: 2006Q4

REPORT INFORMATION
  Report Type: 
  Country: None (occurrence: None)
  Receive Date: 20061215
  Receipt Date: 20061205
  Transmission Date: 20070319
  Serious: Yes (Life-Threatening)
  Sender: FDA-Public Use
  Company Number: 2006151178

PATIENT
  Age: 37 Year
  Sex: Female

DRUGS (6)
  1. ATARAX [Suspect]
     Dosage: 100 MG (100  MG, 1 IN 1 D), ORAL
     Route: 048
  2. DEPAKENE [Suspect]
     Dosage: 1000 MG (500 MG, 2 IN 1 D), ORAL
     Route: 048
     Dates: start: 20050101
  3. LEPTICUR (TROPATEPINE HYDROCHLORIDE) [Suspect]
     Dosage: 20 MG (10 MG, 2 IN 1 D), ORAL
     Route: 048
     Dates: end: 20060425
  4. CLONAZEPAM [Suspect]
     Dosage: ORAL
     Route: 048
     Dates: end: 20060221
  5. ZOPICLONE (ZOPICLONE) [Suspect]
     Dosage: ORAL
     Route: 048
  6. RISPERDAL [Suspect]
     Dosage: ORAL
     Route: 048
     Dates: start: 20050101, end: 20060425

REACTIONS (2)
  - BLOOD HOMOCYSTEINE INCREASED [None]
  - PULMONARY EMBOLISM [None]
